FAERS Safety Report 4708162-3 (Version None)
Quarter: 2005Q3

REPORT INFORMATION
  Report Type: 
  Country: None (occurrence: None)
  Receive Date: 20050707
  Receipt Date: 20050622
  Transmission Date: 20060218
  Serious: Yes (Hospitalization)
  Sender: FDA-Public Use
  Company Number: US-AMGEN-US140300

PATIENT
  Age: 70 Year
  Sex: Female
  Weight: 65.4 kg

DRUGS (5)
  1. PROCRIT [Suspect]
     Indication: ANAEMIA
     Route: 058
     Dates: start: 20040401
  2. INTAL [Concomitant]
  3. SINGULAIR [Concomitant]
  4. PROVENTOL [Concomitant]
  5. ALLERGY MEDICATION [Concomitant]
     Route: 058

REACTIONS (8)
  - ASTHENIA [None]
  - DECREASED APPETITE [None]
  - DEHYDRATION [None]
  - DIZZINESS [None]
  - FATIGUE [None]
  - HEADACHE [None]
  - PNEUMONIA [None]
  - VIRAL INFECTION [None]
